FAERS Safety Report 10946383 (Version 1)
Quarter: 2015Q1

REPORT INFORMATION
  Report Type: Spontaneous
  Country: JP (occurrence: JP)
  Receive Date: 20150323
  Receipt Date: 20150323
  Transmission Date: 20150721
  Serious: Yes (Other)
  Sender: FDA-Public Use
  Company Number: JP-009507513-1503USA010008

PATIENT
  Age: 62 Year
  Sex: Female
  Weight: 54 kg

DRUGS (4)
  1. SIMEPREVIR [Suspect]
     Active Substance: SIMEPREVIR
     Indication: CHRONIC HEPATITIS C
     Dosage: 100 MG, 1 IN 1 DAILY
     Route: 048
     Dates: start: 20140218, end: 20140512
  2. PEGINTRON [Suspect]
     Active Substance: PEGINTERFERON ALFA-2B
     Dosage: 60 MICROGRAM, 1 IN 1 WEEK
     Route: 058
     Dates: start: 20140722, end: 20140729
  3. PEGINTRON [Suspect]
     Active Substance: PEGINTERFERON ALFA-2B
     Indication: CHRONIC HEPATITIS C
     Dosage: 80 MICROGRAM, 1 IN 1 WEEK
     Route: 058
     Dates: start: 20140218, end: 20140722
  4. REBETOL [Suspect]
     Active Substance: RIBAVIRIN
     Indication: CHRONIC HEPATITIS C
     Dosage: 600 MG, ONCE A DAY
     Route: 048
     Dates: start: 20140218, end: 20140804

REACTIONS (6)
  - Rash [Recovered/Resolved]
  - Photosensitivity reaction [Recovered/Resolved]
  - Hepatopulmonary syndrome [Recovering/Resolving]
  - Dyspnoea [Recovered/Resolved]
  - Cough [Not Recovered/Not Resolved]
  - Injection site rash [Recovered/Resolved]

NARRATIVE: CASE EVENT DATE: 20140225
